FAERS Safety Report 21233878 (Version 1)
Quarter: 2022Q3

REPORT INFORMATION
  Report Type: Other
  Country: CA (occurrence: CA)
  Receive Date: 20220819
  Receipt Date: 20220819
  Transmission Date: 20221026
  Serious: Yes (Death, Other)
  Sender: FDA-Public Use
  Company Number: CA-APOTEX-2022AP011283

PATIENT
  Age: 63 Year
  Sex: Female

DRUGS (1)
  1. TEMOZOLOMIDE [Suspect]
     Active Substance: TEMOZOLOMIDE
     Indication: Chemotherapy
     Dosage: UNK
     Route: 065

REACTIONS (6)
  - Aphasia [Fatal]
  - Candida infection [Fatal]
  - Confusional state [Fatal]
  - Dysphagia [Fatal]
  - Mucosal inflammation [Fatal]
  - Pancytopenia [Fatal]
